FAERS Safety Report 6180107-1 (Version None)
Quarter: 2009Q2

REPORT INFORMATION
  Report Type: 
  Country: None (occurrence: None)
  Receive Date: 20090505
  Receipt Date: 20080215
  Transmission Date: 20091009
  Serious: No
  Sender: FDA-Public Use
  Company Number: US-BAYER-US-2007-016767

PATIENT
  Sex: Female

DRUGS (1)
  1. MIRENA [Suspect]
     Dosage: 20 ?G/DAY, CONT
     Route: 015
     Dates: start: 20061101, end: 20070224

REACTIONS (4)
  - COMPLICATION OF DEVICE REMOVAL [None]
  - INTRA-UTERINE CONTRACEPTIVE DEVICE EXPELLED [None]
  - MECHANICAL COMPLICATION OF IMPLANT [None]
  - VAGINAL ODOUR [None]
